FAERS Safety Report 13181532 (Version 1)
Quarter: 2017Q1

REPORT INFORMATION
  Report Type: Report from Study
  Country: US (occurrence: US)
  Receive Date: 20170202
  Receipt Date: 20170202
  Transmission Date: 20170428
  Serious: No
  Sender: FDA-Public Use
  Company Number: US-ARIAD-2017US007670

PATIENT
  Age: 51 Year
  Sex: Female

DRUGS (1)
  1. ICLUSIG [Suspect]
     Active Substance: PONATINIB
     Indication: CHRONIC MYELOID LEUKAEMIA
     Dosage: 30 MG, QD
     Route: 048
     Dates: start: 20161025

REACTIONS (9)
  - Musculoskeletal pain [Unknown]
  - Palpitations [Unknown]
  - Malaise [Unknown]
  - Chest pain [Unknown]
  - Decreased appetite [Unknown]
  - Condition aggravated [Unknown]
  - Abdominal pain upper [Unknown]
  - Nausea [Unknown]
  - Rash pruritic [Unknown]

NARRATIVE: CASE EVENT DATE: 20161229
